FAERS Safety Report 6552191-4 (Version None)
Quarter: 2010Q1

REPORT INFORMATION
  Report Type: 
  Country: None (occurrence: None)
  Receive Date: 20100126
  Receipt Date: 20100118
  Transmission Date: 20100710
  Serious: Yes (Congenital Anomaly)
  Sender: FDA-Public Use
  Company Number: AU-GILEAD-2009-0026256

PATIENT
  Sex: Female
  Weight: 3.182 kg

DRUGS (3)
  1. TRUVADA [Suspect]
     Indication: PROPHYLAXIS AGAINST HIV INFECTION
     Route: 064
  2. EFAVIRENZ [Concomitant]
     Indication: PROPHYLAXIS AGAINST HIV INFECTION
  3. RETROVIR [Concomitant]
     Indication: PROPHYLAXIS AGAINST HIV INFECTION

REACTIONS (1)
  - HYPOPLASTIC RIGHT HEART SYNDROME [None]
